FAERS Safety Report 7531306-5 (Version None)
Quarter: 2011Q2

REPORT INFORMATION
  Report Type: 
  Country: None (occurrence: None)
  Receive Date: 20110608
  Receipt Date: 20110601
  Transmission Date: 20111010
  Serious: Yes (Hospitalization, Other)
  Sender: FDA-Public Use
  Company Number: US-SANOFI-AVENTIS-2010SA065004

PATIENT
  Age: 63 Year
  Sex: Female
  Weight: 78 kg

DRUGS (29)
  1. POLYSACCHARIDE-IRON COMPLEX [Concomitant]
  2. DARVON [Concomitant]
     Dates: start: 20100503
  3. BLINDED THERAPY [Concomitant]
     Indication: BREAST CANCER
     Route: 048
     Dates: start: 20100720
  4. DARVOCET-N 50 [Concomitant]
     Dates: start: 20061007
  5. AVANDIA [Concomitant]
     Dates: start: 20050710
  6. TRAZODONE HCL [Concomitant]
     Indication: ANXIETY
     Dates: start: 20071007
  7. FERROUS FUMARATE [Concomitant]
  8. TERBUTALINE SULFATE [Concomitant]
     Dates: start: 20090217
  9. PREDNISONE [Concomitant]
     Indication: ARTHRITIS
     Dates: start: 20070814
  10. ZOFRAN [Concomitant]
     Indication: VOMITING
     Dates: start: 20080918
  11. LASIX [Suspect]
     Indication: OEDEMA PERIPHERAL
     Dosage: INTAKE AS NEEDED
     Route: 048
     Dates: start: 20060123
  12. LEVOTHYROXINE SODIUM [Concomitant]
     Indication: HYPOTHYROIDISM
     Dates: start: 20060106
  13. XOPENEX [Concomitant]
     Indication: CHRONIC OBSTRUCTIVE PULMONARY DISEASE
     Dates: start: 20090409
  14. SOMA [Concomitant]
     Dates: start: 20080418
  15. GLIMEPIRIDE [Concomitant]
     Dates: start: 20051007
  16. XANAX [Concomitant]
     Indication: ANXIETY
     Dates: start: 20050809
  17. TRAZODONE HCL [Concomitant]
     Indication: DEPRESSION
     Dates: start: 20071007
  18. LOMOTIL [Concomitant]
     Indication: DIARRHOEA
     Dates: start: 20081108
  19. METFORMIN HCL [Concomitant]
     Dates: start: 20060126
  20. ZOFRAN [Concomitant]
     Indication: NAUSEA
     Dates: start: 20080918
  21. IRON PREPARATIONS [Concomitant]
     Indication: ANAEMIA
     Dates: start: 20081027
  22. NEXIUM [Concomitant]
     Indication: GASTROOESOPHAGEAL REFLUX DISEASE
     Dates: start: 20070213
  23. DARVOCET-N 50 [Concomitant]
     Indication: BACK PAIN
     Dates: start: 20061007
  24. PROMETHAZINE [Concomitant]
     Indication: VOMITING
     Dates: start: 20080211
  25. MAGNESIUM OXIDE [Concomitant]
     Dates: start: 20100813
  26. REGLAN [Concomitant]
     Indication: GASTROOESOPHAGEAL REFLUX DISEASE
     Dates: start: 20051206
  27. LIPITOR [Concomitant]
     Indication: HYPERLIPIDAEMIA
     Dates: start: 20061110
  28. PROMETHAZINE [Concomitant]
     Indication: NAUSEA
     Dates: start: 20080211
  29. PROZAC [Concomitant]
     Indication: DEPRESSION
     Dates: start: 20090817

REACTIONS (10)
  - BLOOD CHLORIDE DECREASED [None]
  - BLOOD GLUCOSE DECREASED [None]
  - ELECTROLYTE IMBALANCE [None]
  - BLOOD SODIUM DECREASED [None]
  - FALL [None]
  - CONTUSION [None]
  - BLOOD CREATININE INCREASED [None]
  - BLOOD UREA INCREASED [None]
  - BLOOD CALCIUM DECREASED [None]
  - CARBON DIOXIDE DECREASED [None]
